FAERS Safety Report 6975701-1 (Version None)
Quarter: 2010Q3

REPORT INFORMATION
  Report Type: 
  Country: None (occurrence: None)
  Receive Date: 20100910
  Receipt Date: 20090331
  Transmission Date: 20110219
  Serious: No
  Sender: FDA-Public Use
  Company Number: US-WYE-H08794309

PATIENT
  Sex: Female
  Weight: 52.21 kg

DRUGS (2)
  1. PRISTIQ [Suspect]
     Indication: DEPRESSION
     Route: 048
     Dates: start: 20090323, end: 20090330
  2. TOPROL-XL [Concomitant]

REACTIONS (2)
  - HEADACHE [None]
  - URTICARIA [None]
